FAERS Safety Report 18447347 (Version 1)
Quarter: 2020Q4

REPORT INFORMATION
  Report Type: Spontaneous
  Country: US (occurrence: US)
  Receive Date: 20201030
  Receipt Date: 20201030
  Transmission Date: 20210114
  Serious: Yes (Death)
  Sender: FDA-Public Use
  Company Number: None

PATIENT
  Age: 83 Year
  Sex: Male
  Weight: 63.1 kg

DRUGS (15)
  1. ALLOPURINOL. [Concomitant]
     Active Substance: ALLOPURINOL
  2. CARVEDILOL. [Concomitant]
     Active Substance: CARVEDILOL
  3. ENTRESTO [Concomitant]
     Active Substance: SACUBITRIL\VALSARTAN
  4. FINASTERIDE. [Concomitant]
     Active Substance: FINASTERIDE
  5. GLIPIZIDE ER [Concomitant]
     Active Substance: GLIPIZIDE
  6. FERROUS SULFATE. [Concomitant]
     Active Substance: FERROUS SULFATE
  7. LIDOCAINE. [Concomitant]
     Active Substance: LIDOCAINE
  8. ONDANSETRON [Concomitant]
     Active Substance: ONDANSETRON
  9. PLAVIX [Concomitant]
     Active Substance: CLOPIDOGREL BISULFATE
  10. DECITABINE. [Suspect]
     Active Substance: DECITABINE
     Indication: ACUTE MYELOID LEUKAEMIA
     Route: 042
     Dates: start: 20201014, end: 20201030
  11. ASPIRIN. [Concomitant]
     Active Substance: ASPIRIN
  12. POSACONAZOLE DR [Suspect]
     Active Substance: POSACONAZOLE
     Indication: ACUTE MYELOID LEUKAEMIA
     Route: 048
     Dates: start: 20201009, end: 20201030
  13. INSULIN ASPART [Concomitant]
     Active Substance: INSULIN ASPART
  14. TAMSULOSIN [Concomitant]
     Active Substance: TAMSULOSIN
  15. TRULICITY [Concomitant]
     Active Substance: DULAGLUTIDE

REACTIONS (1)
  - Death [None]

NARRATIVE: CASE EVENT DATE: 20201030
